FAERS Safety Report 8984876 (Version 4)
Quarter: 2013Q1

REPORT INFORMATION
  Report Type: Spontaneous
  Country: US (occurrence: US)
  Receive Date: 20121226
  Receipt Date: 20130328
  Transmission Date: 20140127
  Serious: Yes (Hospitalization)
  Sender: FDA-Public Use
  Company Number: US-PFIZER INC-2012323640

PATIENT
  Age: 66 Year
  Sex: Female
  Weight: 65.31 kg

DRUGS (13)
  1. INLYTA [Suspect]
     Indication: RENAL CANCER
     Dosage: 7 MG, 2X/DAY
     Route: 048
     Dates: start: 20120522
  2. INLYTA [Suspect]
     Dosage: 5 MG, UNK
     Dates: start: 20130307
  3. NORVASC [Concomitant]
     Indication: HYPERTENSION
     Dosage: 5 MG, UNK
     Dates: start: 20120131
  4. METOPROLOL SUCCINATE [Concomitant]
     Indication: HYPERTENSION
     Dosage: 50 MG, 2X/DAY
  5. ZOFRAN [Concomitant]
     Indication: NAUSEA
     Dosage: 8 MG, EVERY EIGHT HOURS PRN
     Route: 048
     Dates: start: 20120605
  6. MAGIC MOUTHWASH [Concomitant]
     Dosage: FOUR TIMES DAILY
     Route: 048
     Dates: start: 20120707
  7. LEVOTHYROXINE SODIUM [Concomitant]
     Dosage: 137 MCG DAILY
     Route: 048
  8. LOSARTAN POTASSIUM [Concomitant]
     Dosage: 50 MG, 2X/DAY
  9. OMEPRAZOLE [Concomitant]
     Dosage: 40 MG, 1X/DAY
  10. TYLENOL [Concomitant]
     Indication: PAIN
     Dosage: 500 MG, EVERY 4 HOURS ORALLY PRN
  11. AMLODIPINE BESILATE [Concomitant]
     Dosage: UNK
  12. ONDASETRON [Concomitant]
     Dosage: UNK
  13. SYNTHROID [Concomitant]
     Dosage: UNK

REACTIONS (9)
  - Diarrhoea [Recovered/Resolved]
  - Dehydration [Recovering/Resolving]
  - Visual impairment [Unknown]
  - Nausea [Unknown]
  - Temperature intolerance [Unknown]
  - Blood pressure increased [Unknown]
  - Fatigue [Recovering/Resolving]
  - Hypotension [Unknown]
  - Diarrhoea [Unknown]
